FAERS Safety Report 8653969 (Version 5)
Quarter: 2012Q4

REPORT INFORMATION
  Report Type: Spontaneous
  Country: AU (occurrence: None)
  Receive Date: 20120620
  Receipt Date: 20120816
  Transmission Date: 20130627
  Serious: Yes (Hospitalization)
  Sender: FDA-Public Use
  Company Number: ACO_30589_2012

PATIENT
  Age: 41 Year
  Sex: Male

DRUGS (5)
  1. AMPYRA [Suspect]
     Indication: MULTIPLE SCLEROSIS
     Dosage: 10 MG, BID, ORAL
     Route: 048
     Dates: start: 20120508
  2. TYSABRI [Concomitant]
  3. ATENOLOL [Concomitant]
  4. FLECAINIDE ACETATE [Concomitant]
  5. ASPIRIN [Concomitant]

REACTIONS (5)
  - Atrial fibrillation [None]
  - Pain [None]
  - Atrial flutter [None]
  - Lymphocyte count increased [None]
  - Palpitations [None]
